FAERS Safety Report 12887142 (Version 2)
Quarter: 2018Q3

REPORT INFORMATION
  Report Type: Spontaneous
  Country: US (occurrence: US)
  Receive Date: 20161026
  Receipt Date: 20180727
  Transmission Date: 20181010
  Serious: No
  Sender: FDA-Public Use
  Company Number: US-ACTELION-A-US2016-144375

PATIENT
  Age: 55 Year
  Sex: Female

DRUGS (12)
  1. TESSALON [Concomitant]
     Active Substance: BENZONATATE
     Dosage: AS DIRECTED
  2. POTASSIUM CHLORIDE. [Concomitant]
     Active Substance: POTASSIUM CHLORIDE
     Dosage: AS DIRECTED
  3. PRILOSEC [Concomitant]
     Active Substance: OMEPRAZOLE MAGNESIUM
     Dosage: AS DIRECTED
  4. PREDNISONE. [Concomitant]
     Active Substance: PREDNISONE
     Dosage: AS DIRECTED
  5. VALCHLOR [Suspect]
     Active Substance: MECHLORETHAMINE
     Indication: MYCOSIS FUNGOIDES
     Dosage: UNK, DAILY
     Route: 061
     Dates: start: 20160924
  6. XANAX [Concomitant]
     Active Substance: ALPRAZOLAM
     Dosage: AS DIRECTED
  7. LASIX [Concomitant]
     Active Substance: FUROSEMIDE
     Dosage: AS DIRECTED
  8. CALCIUM [Concomitant]
     Active Substance: CALCIUM
     Dosage: AS DIRECTED
  9. FLEXERIL [Concomitant]
     Active Substance: CYCLOBENZAPRINE HYDROCHLORIDE
     Dosage: AS DIRECTED
  10. VENTOLIN HFA [Concomitant]
     Active Substance: ALBUTEROL SULFATE
  11. DIOVAN [Concomitant]
     Active Substance: VALSARTAN
     Dosage: AS DIRECTED
  12. HYDRALAZINE [Concomitant]
     Active Substance: HYDRALAZINE HYDROCHLORIDE
     Dosage: AS DIRECTED

REACTIONS (3)
  - Therapy non-responder [Unknown]
  - Skin burning sensation [Unknown]
  - Skin erosion [Unknown]

NARRATIVE: CASE EVENT DATE: 20161020
